FAERS Safety Report 13109904 (Version 1)
Quarter: 2017Q1

REPORT INFORMATION
  Report Type: Spontaneous
  Country: US (occurrence: US)
  Receive Date: 20170112
  Receipt Date: 20170112
  Transmission Date: 20170428
  Serious: No
  Sender: FDA-Public Use
  Company Number: US-ROCHE-1100875

PATIENT
  Sex: Female

DRUGS (4)
  1. DIABETA [Concomitant]
     Active Substance: GLYBURIDE
  2. ASPIRIN. [Concomitant]
     Active Substance: ASPIRIN
     Route: 065
  3. ACTIVASE [Suspect]
     Active Substance: ALTEPLASE
     Indication: MYOCARDIAL INFARCTION
     Route: 065
  4. TENORMIN [Concomitant]
     Active Substance: ATENOLOL
     Route: 065

REACTIONS (2)
  - Arthralgia [Unknown]
  - Fracture [Unknown]
